FAERS Safety Report 6608875-2 (Version None)
Quarter: 2010Q1

REPORT INFORMATION
  Report Type: 
  Country: None (occurrence: None)
  Receive Date: 20100301
  Receipt Date: 20100215
  Transmission Date: 20100710
  Serious: Yes (Other)
  Sender: FDA-Public Use
  Company Number: BR-MYLANLABS-2010S1002413

PATIENT
  Age: 74 Year
  Sex: Female

DRUGS (9)
  1. AMIODARONE HCL [Suspect]
  2. FLUNARIZINE [Suspect]
  3. PRAMIPEXOLE DIHYDROCHLORIDE [Suspect]
     Dosage: TITRATED UP TO 3 MG/DAY
  4. LEVOTHYROXINE SODIUM [Concomitant]
  5. CAPTOPRIL [Concomitant]
  6. TRIMETAZIDINE [Concomitant]
  7. LEVODOPA W/BENSERAZIDE [Concomitant]
     Dosage: LEVODOPA 600MG/DAY + BENSERAZIDE 150 MG/DAY
  8. BIPERIDEN HYDROCHLORIDE TAB [Concomitant]
  9. AMANTADINE HCL [Concomitant]

REACTIONS (3)
  - OEDEMA [None]
  - PROGRESSIVE SUPRANUCLEAR PALSY [None]
  - SOMNOLENCE [None]
